FAERS Safety Report 8229002-4 (Version None)
Quarter: 2012Q1

REPORT INFORMATION
  Report Type: 
  Country: None (occurrence: None)
  Receive Date: 20120322
  Receipt Date: 20120320
  Transmission Date: 20120608
  Serious: No
  Sender: FDA-Public Use
  Company Number: US-PFIZER INC-2012072950

PATIENT
  Sex: Female
  Weight: 68.027 kg

DRUGS (2)
  1. IBUPROFEN (ADVIL) [Suspect]
     Indication: JOINT DISLOCATION
  2. IBUPROFEN (ADVIL) [Suspect]
     Indication: ANKLE FRACTURE
     Dosage: UNK, AS NEEDED

REACTIONS (2)
  - DRUG INEFFECTIVE [None]
  - POOR QUALITY DRUG ADMINISTERED [None]
